FAERS Safety Report 18250096 (Version 2)
Quarter: 2020Q3

REPORT INFORMATION
  Report Type: Spontaneous
  Country: RU (occurrence: RU)
  Receive Date: 20200910
  Receipt Date: 20200928
  Transmission Date: 20201103
  Serious: Yes (Hospitalization, Other)
  Sender: FDA-Public Use
  Company Number: NVSC2020RU246891

PATIENT
  Age: 52 Year
  Sex: Male

DRUGS (9)
  1. TACROLIMUS. [Suspect]
     Active Substance: TACROLIMUS
     Indication: IMMUNOSUPPRESSANT DRUG THERAPY
  2. DACLATASVIR. [Concomitant]
     Active Substance: DACLATASVIR
     Indication: ANTIVIRAL TREATMENT
     Dosage: UNK
     Route: 065
  3. TACROLIMUS. [Suspect]
     Active Substance: TACROLIMUS
     Indication: LIVER TRANSPLANT
     Dosage: UNK
     Route: 065
  4. VELPATASVIR [Concomitant]
     Active Substance: VELPATASVIR
     Indication: ANTIVIRAL TREATMENT
     Dosage: UNK
     Route: 065
  5. RITONAVIR. [Concomitant]
     Active Substance: RITONAVIR
     Indication: ANTIVIRAL TREATMENT
     Dosage: UNK
     Route: 065
  6. PARITAPREVIR [Concomitant]
     Active Substance: PARITAPREVIR
     Indication: ANTIVIRAL TREATMENT
     Dosage: UNK
     Route: 065
  7. DASABUVIR [Concomitant]
     Active Substance: DASABUVIR
     Indication: ANTIVIRAL TREATMENT
     Dosage: UNK
     Route: 065
  8. OMBITASVIR [Concomitant]
     Active Substance: OMBITASVIR
     Indication: ANTIVIRAL TREATMENT
     Dosage: UNK
     Route: 065
  9. SOFOSBUVIR [Concomitant]
     Active Substance: SOFOSBUVIR
     Indication: ANTIVIRAL TREATMENT
     Dosage: UNK
     Route: 065

REACTIONS (3)
  - Renal failure [Recovered/Resolved]
  - Neurotoxicity [Recovered/Resolved]
  - Hyperglycaemia [Recovered/Resolved]
